FAERS Safety Report 14537817 (Version 1)
Quarter: 2018Q1

REPORT INFORMATION
  Report Type: Spontaneous
  Country: AT (occurrence: AT)
  Receive Date: 20180215
  Receipt Date: 20180215
  Transmission Date: 20180509
  Serious: Yes (Other)
  Sender: FDA-Public Use
  Company Number: AT-CONCORDIA PHARMACEUTICALS INC.-E2B_00009896

PATIENT
  Age: 54 Year
  Sex: Female

DRUGS (36)
  1. TRANYLCYPROMINE [Suspect]
     Active Substance: TRANYLCYPROMINE
     Dates: start: 20171223
  2. TEMESTA (LORAZEPAM) [Concomitant]
     Active Substance: LORAZEPAM
     Dates: start: 20171115, end: 20171116
  3. TEMESTA (LORAZEPAM) [Concomitant]
     Active Substance: LORAZEPAM
     Dates: start: 20171201, end: 20171201
  4. TEMESTA (LORAZEPAM) [Concomitant]
     Active Substance: LORAZEPAM
     Dates: start: 20171126, end: 20171127
  5. TEMESTA (LORAZEPAM) [Concomitant]
     Active Substance: LORAZEPAM
     Dates: start: 20171202, end: 20171203
  6. TEMESTA (LORAZEPAM) [Concomitant]
     Active Substance: LORAZEPAM
     Dates: start: 20171028, end: 20171028
  7. TRANYLCYPROMINE [Suspect]
     Active Substance: TRANYLCYPROMINE
     Dates: start: 20171212, end: 20171222
  8. TEMESTA (LORAZEPAM) [Concomitant]
     Active Substance: LORAZEPAM
     Dates: start: 20171109, end: 20171112
  9. TEMESTA (LORAZEPAM) [Concomitant]
     Active Substance: LORAZEPAM
     Dates: start: 20171204, end: 20171206
  10. TEMESTA (LORAZEPAM) [Concomitant]
     Active Substance: LORAZEPAM
     Dates: start: 20171218, end: 20171221
  11. TEMESTA (LORAZEPAM) [Concomitant]
     Active Substance: LORAZEPAM
     Dates: start: 20171107, end: 20171108
  12. TEMESTA (LORAZEPAM) [Concomitant]
     Active Substance: LORAZEPAM
     Dates: start: 20171121, end: 20171121
  13. TEMESTA (LORAZEPAM) [Concomitant]
     Active Substance: LORAZEPAM
     Dates: start: 20171025, end: 20171027
  14. TEMESTA (LORAZEPAM) [Concomitant]
     Active Substance: LORAZEPAM
     Dates: start: 20171104, end: 20171106
  15. TEMESTA (LORAZEPAM) [Concomitant]
     Active Substance: LORAZEPAM
     Dates: start: 20171123, end: 20171124
  16. TEMESTA (LORAZEPAM) [Concomitant]
     Active Substance: LORAZEPAM
     Dates: start: 20171212, end: 20171216
  17. PIOGLITAZON [Concomitant]
     Dosage: SINCE MONTHS
  18. TRANYLCYPROMINE [Suspect]
     Active Substance: TRANYLCYPROMINE
     Dates: start: 20171129, end: 20171203
  19. TRANYLCYPROMINE [Suspect]
     Active Substance: TRANYLCYPROMINE
     Dates: start: 20171204, end: 20171206
  20. TEMESTA (LORAZEPAM) [Concomitant]
     Active Substance: LORAZEPAM
     Dates: start: 20171129, end: 20171130
  21. ATORVASTATIN [Concomitant]
     Active Substance: ATORVASTATIN
     Dosage: SINCE MONTHS
  22. TRANYLCYPROMINE [Suspect]
     Active Substance: TRANYLCYPROMINE
     Dates: start: 20171128, end: 20171128
  23. TEMESTA (LORAZEPAM) [Concomitant]
     Active Substance: LORAZEPAM
     Dates: start: 20171113, end: 20171114
  24. TEMESTA (LORAZEPAM) [Concomitant]
     Active Substance: LORAZEPAM
     Dates: start: 20171119, end: 20171120
  25. TEMESTA (LORAZEPAM) [Concomitant]
     Active Substance: LORAZEPAM
     Dates: start: 20171125, end: 20171125
  26. TEMESTA (LORAZEPAM) [Concomitant]
     Active Substance: LORAZEPAM
     Dosage: SINCE MONTHS
     Dates: end: 20171024
  27. TRANYLCYPROMINE [Suspect]
     Active Substance: TRANYLCYPROMINE
     Dates: start: 20171207, end: 20171207
  28. TEMESTA (LORAZEPAM) [Concomitant]
     Active Substance: LORAZEPAM
     Dates: start: 20171128, end: 20171128
  29. TEMESTA (LORAZEPAM) [Concomitant]
     Active Substance: LORAZEPAM
     Dates: start: 20171122, end: 20171122
  30. TEMESTA (LORAZEPAM) [Concomitant]
     Active Substance: LORAZEPAM
     Dates: start: 20171117, end: 20171118
  31. SEROQUEL [Concomitant]
     Active Substance: QUETIAPINE FUMARATE
     Dates: start: 201709
  32. JARDIANCE [Concomitant]
     Active Substance: EMPAGLIFLOZIN
     Dosage: SINCE MONTHS
  33. DIABETEX [Concomitant]
     Dosage: SINCE MONTHS
     Dates: end: 20171213
  34. TEMESTA (LORAZEPAM) [Concomitant]
     Active Substance: LORAZEPAM
     Dates: start: 20171029, end: 20171103
  35. TRANYLCYPROMINE [Suspect]
     Active Substance: TRANYLCYPROMINE
     Dates: start: 20171208, end: 20171211
  36. TEMESTA (LORAZEPAM) [Concomitant]
     Active Substance: LORAZEPAM
     Dates: start: 20171208, end: 20171208

REACTIONS (1)
  - Hypertensive crisis [Recovered/Resolved]

NARRATIVE: CASE EVENT DATE: 20171207
